FAERS Safety Report 4549362-5 (Version None)
Quarter: 2005Q1

REPORT INFORMATION
  Report Type: 
  Country: None (occurrence: None)
  Receive Date: 20041230
  Receipt Date: 20040628
  Transmission Date: 20050727
  Serious: Yes (Death)
  Sender: FDA-Public Use
  Company Number: 04-06-0954

PATIENT
  Age: 31 Year
  Sex: Male
  Weight: 104.3273 kg

DRUGS (2)
  1. CLOZAPINE [Suspect]
     Indication: SCHIZOPHRENIA
     Dosage: 300MG HS ORAL
     Route: 048
     Dates: start: 20040101, end: 20040621
  2. LEXAPRO TABLETS [Suspect]
     Indication: DEPRESSION
     Dosage: 30MG AM ORAL
     Route: 048
     Dates: start: 20031113, end: 20040621

REACTIONS (1)
  - DRUG TOXICITY [None]
